FAERS Safety Report 4993618-9 (Version None)
Quarter: 2006Q2

REPORT INFORMATION
  Report Type: 
  Country: None (occurrence: None)
  Receive Date: 20060505
  Receipt Date: 20060424
  Transmission Date: 20061013
  Serious: Yes (Hospitalization)
  Sender: FDA-Public Use
  Company Number: FR-JNJFOC-20060405356

PATIENT
  Age: 82 Year
  Sex: Female

DRUGS (7)
  1. RISPERDAL [Suspect]
     Route: 048
  2. LORAZEPAM [Interacting]
     Indication: SLEEP DISORDER
     Route: 048
  3. VALACYCLOVIR HCL [Concomitant]
  4. ARICEPT [Concomitant]
  5. NEXIUM [Concomitant]
  6. VASTAREL [Concomitant]
  7. ASPIRIN [Concomitant]

REACTIONS (3)
  - CONFUSIONAL STATE [None]
  - DRUG INTERACTION [None]
  - SOMNOLENCE [None]
